FAERS Safety Report 18738451 (Version 2)
Quarter: 2022Q1

REPORT INFORMATION
  Report Type: Spontaneous
  Country: US (occurrence: None)
  Receive Date: 20210114
  Receipt Date: 20220311
  Transmission Date: 20220423
  Serious: Yes (Hospitalization, Other)
  Sender: FDA-Public Use
  Company Number: 2021A004566

PATIENT
  Age: 69 Year
  Sex: Male
  Weight: 88.5 kg

DRUGS (18)
  1. NEXIUM [Suspect]
     Active Substance: ESOMEPRAZOLE MAGNESIUM
     Indication: Gastrooesophageal reflux disease
     Route: 048
     Dates: start: 201401, end: 201901
  2. NEXIUM [Suspect]
     Active Substance: ESOMEPRAZOLE MAGNESIUM
     Indication: Gastrooesophageal reflux disease
     Route: 048
     Dates: start: 2014, end: 2019
  3. PRILOSEC [Suspect]
     Active Substance: OMEPRAZOLE MAGNESIUM
     Indication: Gastrooesophageal reflux disease
     Route: 048
     Dates: start: 201401, end: 201901
  4. PRILOSEC [Suspect]
     Active Substance: OMEPRAZOLE MAGNESIUM
     Indication: Gastrooesophageal reflux disease
     Route: 048
     Dates: start: 201401, end: 201901
  5. PRILOSEC [Suspect]
     Active Substance: OMEPRAZOLE MAGNESIUM
     Indication: Gastrooesophageal reflux disease
     Dosage: GENERIC
     Route: 065
     Dates: start: 2009, end: 2019
  6. DEXILANT [Suspect]
     Active Substance: DEXLANSOPRAZOLE
     Indication: Gastrooesophageal reflux disease
     Route: 065
     Dates: start: 201401, end: 201901
  7. DEXILANT [Suspect]
     Active Substance: DEXLANSOPRAZOLE
     Indication: Gastrooesophageal reflux disease
     Route: 065
     Dates: start: 2014, end: 2019
  8. PROTONIX [Suspect]
     Active Substance: PANTOPRAZOLE SODIUM
     Indication: Gastrooesophageal reflux disease
     Route: 065
     Dates: start: 201401, end: 201901
  9. PROTONIX [Suspect]
     Active Substance: PANTOPRAZOLE SODIUM
     Indication: Gastrooesophageal reflux disease
     Dosage: GENERIC
     Route: 065
     Dates: start: 2011, end: 2013
  10. PROTONIX [Suspect]
     Active Substance: PANTOPRAZOLE SODIUM
     Indication: Gastrooesophageal reflux disease
     Route: 065
     Dates: start: 2014, end: 2019
  11. TEMAZEPAM [Concomitant]
     Active Substance: TEMAZEPAM
     Indication: Insomnia
     Dates: start: 2010, end: 2015
  12. METOPROLOL [Concomitant]
     Active Substance: METOPROLOL
     Indication: Blood pressure measurement
     Dates: start: 2011, end: 2019
  13. METFORMIN [Concomitant]
     Active Substance: METFORMIN HYDROCHLORIDE
     Indication: Blood pressure measurement
     Dates: start: 2009, end: 2019
  14. ACETAMINOPHEN [Concomitant]
     Active Substance: ACETAMINOPHEN
     Indication: Analgesic therapy
     Dates: start: 2015, end: 2016
  15. ASPIRIN [Concomitant]
     Active Substance: ASPIRIN
     Indication: Analgesic therapy
     Dates: start: 2011, end: 2017
  16. VITAMIN B12 NOS/NICOTINAMIDE/ADENOSINE TRIPHOSPHATE/COCARBOXYLASE [Concomitant]
     Indication: Product prescribing error
     Dates: start: 2012
  17. FAMOTIDINE [Concomitant]
     Active Substance: FAMOTIDINE
     Dates: start: 2011
  18. ZANTAC [Concomitant]
     Active Substance: RANITIDINE HYDROCHLORIDE
     Dates: start: 2011, end: 2012

REACTIONS (1)
  - Gastric cancer [Not Recovered/Not Resolved]

NARRATIVE: CASE EVENT DATE: 20160101
